FAERS Safety Report 7559460-X (Version None)
Quarter: 2011Q2

REPORT INFORMATION
  Report Type: 
  Country: None (occurrence: None)
  Receive Date: 20110621
  Receipt Date: 20110613
  Transmission Date: 20111010
  Serious: Yes (Hospitalization)
  Sender: FDA-Public Use
  Company Number: US-BRISTOL-MYERS SQUIBB COMPANY-15124357

PATIENT
  Age: 75 Year
  Sex: Male

DRUGS (2)
  1. PLACEBO [Suspect]
     Indication: THROMBOSIS PROPHYLAXIS
     Dosage: INTERUPTED ON API/PLA:19MAY10. WAR/PLA:17MAY10
     Route: 048
     Dates: start: 20070416
  2. WARFARIN SODIUM [Suspect]
     Indication: THROMBOSIS PROPHYLAXIS
     Dosage: DRUG INTERRUPTED ON 17MAY10
     Route: 048
     Dates: start: 20070416

REACTIONS (1)
  - BENIGN NEOPLASM OF THYROID GLAND [None]
